FAERS Safety Report 11351081 (Version 1)
Quarter: 2015Q3

REPORT INFORMATION
  Report Type: Spontaneous
  Country: US (occurrence: US)
  Receive Date: 20150807
  Receipt Date: 20150807
  Transmission Date: 20151125
  Serious: No
  Sender: FDA-Public Use
  Company Number: US-JNJFOC-20150708765

PATIENT
  Sex: Male
  Weight: 102.06 kg

DRUGS (1)
  1. VISINE L.R. [Suspect]
     Active Substance: OXYMETAZOLINE HYDROCHLORIDE
     Indication: OCULAR HYPERAEMIA
     Dosage: EACH EYE
     Route: 047

REACTIONS (2)
  - Expired product administered [Unknown]
  - Intentional product misuse [Unknown]
